FAERS Safety Report 15457506 (Version 1)
Quarter: 2018Q4

REPORT INFORMATION
  Report Type: Spontaneous
  Country: IT (occurrence: IT)
  Receive Date: 20181003
  Receipt Date: 20181003
  Transmission Date: 20190204
  Serious: Yes (Hospitalization, Disabling, Other)
  Sender: FDA-Public Use
  Company Number: IT-BAXTER-2018BAX024343

PATIENT
  Age: 57 Year
  Sex: Female

DRUGS (6)
  1. FLUOROURACIL. [Suspect]
     Active Substance: FLUOROURACIL
     Indication: BREAST CANCER FEMALE
     Dosage: 12 CYCLES
     Route: 042
  2. ENDOXAN BAXTER [Suspect]
     Active Substance: CYCLOPHOSPHAMIDE
     Indication: BREAST CANCER FEMALE
     Dosage: 12 CYCLES
     Route: 042
  3. CHLORHEXIDINE [Concomitant]
     Active Substance: CHLORHEXIDINE
     Indication: INFECTION PROPHYLAXIS
     Dosage: CHLORHEXIDINE 2 %;
     Route: 061
  4. ISOPROPYL ALCOHOL. [Concomitant]
     Active Substance: ISOPROPYL ALCOHOL
     Indication: INFECTION PROPHYLAXIS
     Dosage: ISOPROPYL ALCOHOL 70 %
     Route: 061
  5. EPIRUBICIN [Suspect]
     Active Substance: EPIRUBICIN
     Indication: BREAST CANCER FEMALE
     Dosage: 12 CYCLES
     Route: 042
  6. TRASTUZUMAB. [Suspect]
     Active Substance: TRASTUZUMAB
     Indication: BREAST CANCER FEMALE
     Route: 042

REACTIONS (9)
  - Spinal cord compression [Recovering/Resolving]
  - Muscle disorder [Not Recovered/Not Resolved]
  - Sepsis [Unknown]
  - Gait apraxia [Not Recovered/Not Resolved]
  - Intervertebral discitis [Recovering/Resolving]
  - Dislocation of vertebra [Recovering/Resolving]
  - Hypotonia [Unknown]
  - Gait disturbance [Recovering/Resolving]
  - Staphylococcal infection [Unknown]
